FAERS Safety Report 8387810-3 (Version None)
Quarter: 2012Q2

REPORT INFORMATION
  Report Type: 
  Country: None (occurrence: None)
  Receive Date: 20120525
  Receipt Date: 20120430
  Transmission Date: 20120825
  Serious: No
  Sender: FDA-Public Use
  Company Number: US-BRISTOL-MYERS SQUIBB COMPANY-16560179

PATIENT
  Age: 78 Year
  Sex: Female

DRUGS (1)
  1. KOMBIGLYZE XR [Suspect]
     Dosage: 1 DF= 3 TABS OF 5/1000MG. FORM: 5/1000 MG

REACTIONS (3)
  - DYSPNOEA [None]
  - DIZZINESS [None]
  - SWELLING [None]
